FAERS Safety Report 5601064-X (Version None)
Quarter: 2008Q1

REPORT INFORMATION
  Report Type: 
  Country: None (occurrence: None)
  Receive Date: 20080118
  Receipt Date: 20080104
  Transmission Date: 20080703
  Serious: Yes (Death, Other)
  Sender: FDA-Public Use
  Company Number: 2008BI000730

PATIENT
  Sex: Male

DRUGS (3)
  1. ZEVALIN [Suspect]
     Indication: NON-HODGKIN'S LYMPHOMA
  2. RITUXIMAB [Concomitant]
  3. ANTIBIOTIC PROPHYLAXIS [Concomitant]

REACTIONS (3)
  - LIVER DISORDER [None]
  - NEUTROPENIA [None]
  - THROMBOCYTOPENIA [None]
